FAERS Safety Report 18056643 (Version 4)
Quarter: 2020Q3

REPORT INFORMATION
  Report Type: Spontaneous
  Country: US (occurrence: US)
  Receive Date: 20200722
  Receipt Date: 20200729
  Transmission Date: 20201104
  Serious: Yes (Death, Life-Threatening, Hospitalization)
  Sender: FDA-Public Use
  Company Number: US-CELGENEUS-USA-20200704789

PATIENT
  Age: 72 Year
  Sex: Male

DRUGS (63)
  1. ZOLOFT [Concomitant]
     Active Substance: SERTRALINE HYDROCHLORIDE
     Indication: DEPRESSION
     Dosage: 100 MILLIGRAM
     Route: 048
     Dates: start: 2007
  2. MYCAMINE [Concomitant]
     Active Substance: MICAFUNGIN SODIUM
     Indication: PRODUCT USED FOR UNKNOWN INDICATION
     Route: 041
  3. FERROUS SULFATE. [Concomitant]
     Active Substance: FERROUS SULFATE
     Indication: ANAEMIA
     Dosage: 975 MILLIGRAM
     Route: 048
     Dates: start: 20171117, end: 20171218
  4. BLOOD [Concomitant]
     Active Substance: WHOLE BLOOD
     Dosage: 1 IU (INTERNATIONAL UNIT)
     Route: 041
     Dates: start: 20170801, end: 20170801
  5. VIDAZA [Suspect]
     Active Substance: AZACITIDINE
     Dosage: 75 MILLIGRAM/SQ. METER
     Route: 041
     Dates: start: 20171116, end: 20171217
  6. LOMOTIL [Concomitant]
     Active Substance: ATROPINE SULFATE\DIPHENOXYLATE HYDROCHLORIDE
     Dosage: 2.5?.025 MG
     Route: 048
  7. PALONOSETRON. [Concomitant]
     Active Substance: PALONOSETRON HYDROCHLORIDE
     Indication: PREMEDICATION
     Route: 041
     Dates: start: 20170717
  8. DEXAMETHASONE. [Concomitant]
     Active Substance: DEXAMETHASONE
     Route: 041
     Dates: start: 20170822, end: 20170905
  9. ACETAMINOPHEN. [Concomitant]
     Active Substance: ACETAMINOPHEN
     Indication: PREMEDICATION
     Route: 048
     Dates: start: 20170725
  10. DIPHENHYDRAMINE. [Concomitant]
     Active Substance: DIPHENHYDRAMINE
     Indication: PREMEDICATION
     Route: 041
     Dates: start: 20170725
  11. NOXAFIL [Concomitant]
     Active Substance: POSACONAZOLE
     Dosage: 300 MG TOTAL
     Route: 048
     Dates: start: 20171116
  12. BLOOD [Concomitant]
     Active Substance: WHOLE BLOOD
     Dosage: 1 IU (INTERNATIONAL UNIT)
     Route: 041
     Dates: start: 20170720, end: 20170720
  13. PLATELETS [Concomitant]
     Active Substance: HUMAN PLATELET, ALLOGENIC
     Dosage: 1 IU (INTERNATIONAL UNIT)
     Route: 041
     Dates: start: 20170731, end: 20170731
  14. VIDAZA [Suspect]
     Active Substance: AZACITIDINE
     Indication: ACUTE MYELOID LEUKAEMIA
     Dosage: 75 MILLIGRAM/SQ. METER
     Route: 041
     Dates: start: 20170717, end: 20171018
  15. NOXAFIL [Concomitant]
     Active Substance: POSACONAZOLE
     Indication: INFECTION PROPHYLAXIS
     Dosage: 300 MILLIGRAM
     Route: 048
     Dates: start: 20170810
  16. ZOFRAN [Concomitant]
     Active Substance: ONDANSETRON HYDROCHLORIDE
     Indication: PROPHYLAXIS OF NAUSEA AND VOMITING
     Route: 048
     Dates: start: 20170717
  17. BLOOD [Concomitant]
     Active Substance: WHOLE BLOOD
     Indication: ANAEMIA
     Dosage: 1 IU (INTERNATIONAL UNIT)
     Route: 041
     Dates: start: 20170717, end: 20170717
  18. BLOOD [Concomitant]
     Active Substance: WHOLE BLOOD
     Dosage: 1 IU (INTERNATIONAL UNIT)
     Route: 041
     Dates: start: 20170815, end: 20170815
  19. PLATELETS [Concomitant]
     Active Substance: HUMAN PLATELET, ALLOGENIC
     Indication: THROMBOCYTOPENIA
     Dosage: 1 IU (INTERNATIONAL UNIT)
     Route: 041
     Dates: start: 20170726, end: 20170726
  20. PLATELETS [Concomitant]
     Active Substance: HUMAN PLATELET, ALLOGENIC
     Dosage: 1 IU (INTERNATIONAL UNIT)
     Route: 041
     Dates: start: 20170808, end: 20170808
  21. VIDAZA [Suspect]
     Active Substance: AZACITIDINE
     Dosage: 75 MILLIGRAM/SQ. METER
     Route: 041
     Dates: start: 20180114
  22. REMERON [Concomitant]
     Active Substance: MIRTAZAPINE
     Indication: COLITIS ULCERATIVE
     Route: 048
  23. DEXAMETHASONE. [Concomitant]
     Active Substance: DEXAMETHASONE
     Indication: PREMEDICATION
     Dosage: 10 MILLIGRAM
     Route: 041
     Dates: start: 20170717
  24. COMPAZINE [Concomitant]
     Active Substance: PROCHLORPERAZINE MALEATE
     Indication: PROPHYLAXIS OF NAUSEA AND VOMITING
     Route: 048
     Dates: start: 20170717
  25. DELTASONE [Concomitant]
     Active Substance: PREDNISONE
     Dosage: 10 MILLIGRAM
     Route: 048
     Dates: start: 20171116
  26. PIPERACILLIN AND TAZOBACTAM [Concomitant]
     Active Substance: PIPERACILLIN SODIUM\TAZOBACTAM SODIUM
     Indication: PRODUCT USED FOR UNKNOWN INDICATION
     Dosage: 10.125 MG
     Route: 041
  27. PREDNISONE. [Concomitant]
     Active Substance: PREDNISONE
     Indication: COLITIS ULCERATIVE
     Dosage: 10 MILLIGRAM
     Route: 048
     Dates: start: 20170814
  28. POTASSIUM CHLORIDE. [Suspect]
     Active Substance: POTASSIUM CHLORIDE
     Dosage: 20 MILLIEQUIVALENTS
     Route: 041
     Dates: start: 20170821, end: 20170821
  29. IMODIUM [Concomitant]
     Active Substance: LOPERAMIDE HYDROCHLORIDE
     Indication: DIARRHOEA
     Route: 048
     Dates: start: 2014
  30. LEVOFLOXACIN. [Concomitant]
     Active Substance: LEVOFLOXACIN
     Indication: INFECTION PROPHYLAXIS
     Dosage: 500 MILLIGRAM
     Route: 048
     Dates: start: 20170725
  31. ATIVAN [Concomitant]
     Active Substance: LORAZEPAM
     Indication: PREMEDICATION
     Route: 058
     Dates: start: 20170729
  32. LEXAPRO [Concomitant]
     Active Substance: ESCITALOPRAM OXALATE
     Indication: DEPRESSION
     Dosage: 10 MILLIGRAM
     Route: 048
     Dates: start: 20171211
  33. XYLOCAINE WITH EPINEPHRINE [Suspect]
     Active Substance: EPINEPHRINE BITARTRATE\LIDOCAINE HYDROCHLORIDE
     Indication: PROCEDURAL PAIN
     Dosage: 1:100
     Route: 058
     Dates: start: 20170701, end: 20170701
  34. POTASSIUM CHLORIDE. [Suspect]
     Active Substance: POTASSIUM CHLORIDE
     Indication: HYPOKALAEMIA
     Route: 041
     Dates: start: 20170807, end: 20170808
  35. POTASSIUM CHLORIDE. [Suspect]
     Active Substance: POTASSIUM CHLORIDE
     Dosage: 40 MILLIEQUIVALENTS
     Route: 041
     Dates: start: 20170815, end: 20170815
  36. BI?836858. [Suspect]
     Active Substance: BI-836858
     Dosage: 40 MILLIGRAM
     Route: 041
     Dates: start: 20170905
  37. BI?836858. [Suspect]
     Active Substance: BI-836858
     Dosage: 40 MILLIGRAM
     Route: 041
     Dates: end: 20171106
  38. LOMOTIL [Concomitant]
     Active Substance: ATROPINE SULFATE\DIPHENOXYLATE HYDROCHLORIDE
     Indication: DIARRHOEA
     Dosage: 2.5?.025 MG
     Route: 048
     Dates: start: 2014
  39. LIPITOR [Concomitant]
     Active Substance: ATORVASTATIN CALCIUM
     Indication: HYPERLIPIDAEMIA
     Dosage: 40 MILLIGRAM
     Route: 048
     Dates: start: 2005
  40. LACTOBACILLUS [Concomitant]
     Active Substance: LACTOBACILLUS ACIDOPHILUS
     Indication: ASTHENIA
     Route: 048
     Dates: start: 201705
  41. DEXAMETHASONE. [Concomitant]
     Active Substance: DEXAMETHASONE
     Route: 041
     Dates: start: 20170911, end: 20170911
  42. HYPERTONIC SALINE SOLUTION [Concomitant]
     Active Substance: SODIUM CHLORIDE
     Indication: PRODUCT USED FOR UNKNOWN INDICATION
     Route: 055
  43. PROCHLORPERAZINE. [Concomitant]
     Active Substance: PROCHLORPERAZINE
     Indication: NAUSEA
     Route: 048
  44. BLOOD [Concomitant]
     Active Substance: WHOLE BLOOD
     Dosage: 1 IU (INTERNATIONAL UNIT)
     Route: 041
     Dates: start: 20170802, end: 20170802
  45. SODIUM CHLORIDE. [Suspect]
     Active Substance: SODIUM CHLORIDE
     Indication: HYPOTENSION
     Route: 041
     Dates: start: 20170725, end: 20170815
  46. SODIUM CHLORIDE. [Suspect]
     Active Substance: SODIUM CHLORIDE
     Indication: DEHYDRATION
     Dosage: 1000 MILLIGRAM
     Route: 041
     Dates: start: 20170816
  47. BI?836858. [Suspect]
     Active Substance: BI-836858
     Dosage: 40 MILLIGRAM
     Route: 041
     Dates: end: 20180111
  48. ZOLOFT [Concomitant]
     Active Substance: SERTRALINE HYDROCHLORIDE
     Dosage: 100 MILLIGRAM
     Route: 048
     Dates: start: 20171116
  49. PRILOSEC [Concomitant]
     Active Substance: OMEPRAZOLE MAGNESIUM
     Indication: COLITIS ULCERATIVE
     Route: 048
     Dates: start: 2015
  50. ZOVIRAX [Concomitant]
     Active Substance: ACYCLOVIR
     Indication: INFECTION PROPHYLAXIS
     Dosage: 800 MILLIGRAM
     Route: 048
     Dates: start: 20170725
  51. DELTASONE [Concomitant]
     Active Substance: PREDNISONE
     Indication: COLITIS ULCERATIVE
     Dosage: 10 MILLIGRAM
     Route: 048
     Dates: start: 20170713
  52. ESCITALOPRAM OXALATE. [Concomitant]
     Active Substance: ESCITALOPRAM OXALATE
     Indication: PRODUCT USED FOR UNKNOWN INDICATION
     Dosage: 10 MILLIGRAM
     Route: 048
  53. GENTAMICIN. [Concomitant]
     Active Substance: GENTAMICIN
     Indication: EAR HAEMORRHAGE
     Route: 048
     Dates: start: 20171102
  54. BLOOD [Concomitant]
     Active Substance: WHOLE BLOOD
     Dosage: 1 IU (INTERNATIONAL UNIT)
     Route: 041
     Dates: start: 20170726, end: 20170726
  55. BLOOD [Concomitant]
     Active Substance: WHOLE BLOOD
     Dosage: 1 IU (INTERNATIONAL UNIT)
     Route: 041
     Dates: start: 20170809, end: 20170809
  56. BI?836858. [Suspect]
     Active Substance: BI-836858
     Indication: ACUTE MYELOID LEUKAEMIA
     Dosage: 40 MILLIGRAM
     Route: 041
     Dates: start: 20170725
  57. DEXAMETHASONE. [Concomitant]
     Active Substance: DEXAMETHASONE
     Indication: PREMEDICATION
     Dosage: 16 MILLIGRAM
     Route: 041
     Dates: start: 20170725, end: 20170815
  58. MEGACE [Concomitant]
     Active Substance: MEGESTROL ACETATE
     Indication: DECREASED APPETITE
     Dosage: 40 MILLIGRAM
     Route: 048
     Dates: start: 20170814
  59. PROCHLORPERAZINE. [Concomitant]
     Active Substance: PROCHLORPERAZINE
     Indication: VOMITING
  60. FERROUS SULFATE. [Concomitant]
     Active Substance: FERROUS SULFATE
     Dosage: 1300 MILLIGRAM
     Route: 048
     Dates: start: 20171219, end: 20180107
  61. FERROUS SULFATE. [Concomitant]
     Active Substance: FERROUS SULFATE
     Dosage: 650 MILLIGRAM
     Route: 048
     Dates: start: 20180108
  62. PLATELETS [Concomitant]
     Active Substance: HUMAN PLATELET, ALLOGENIC
     Dosage: 1 IU (INTERNATIONAL UNIT)
     Route: 041
     Dates: start: 20170806, end: 20170806
  63. PLATELETS [Concomitant]
     Active Substance: HUMAN PLATELET, ALLOGENIC
     Dosage: 1 IU (INTERNATIONAL UNIT)
     Route: 041
     Dates: start: 20170814, end: 20170814

REACTIONS (12)
  - Clostridium difficile infection [Recovered/Resolved]
  - Muscular weakness [Recovered/Resolved]
  - Soft tissue infection [Recovered/Resolved]
  - Haematoma infection [Recovered/Resolved]
  - Clostridium difficile infection [Recovered/Resolved]
  - Staphylococcal infection [Recovered/Resolved]
  - Sepsis [Recovering/Resolving]
  - Fall [Recovered/Resolved]
  - Gastrointestinal haemorrhage [Recovered/Resolved]
  - Pneumonia [Fatal]
  - Gastrointestinal haemorrhage [Recovered/Resolved]
  - Concussion [Unknown]

NARRATIVE: CASE EVENT DATE: 20170805
